FAERS Safety Report 22291844 (Version 1)
Quarter: 2023Q2

REPORT INFORMATION
  Report Type: Spontaneous
  Country: RU (occurrence: None)
  Receive Date: 20230507
  Receipt Date: 20230507
  Transmission Date: 20230722
  Serious: Yes (Other)
  Sender: FDA-Public Use
  Company Number: RU-ROCHE-3343834

PATIENT
  Sex: Female

DRUGS (1)
  1. PERJETA [Suspect]
     Active Substance: PERTUZUMAB
     Indication: Breast cancer metastatic
     Route: 065

REACTIONS (1)
  - Ejection fraction decreased [Unknown]
